FAERS Safety Report 10752796 (Version 1)
Quarter: 2015Q1

REPORT INFORMATION
  Report Type: Spontaneous
  Country: US (occurrence: US)
  Receive Date: 20150130
  Receipt Date: 20150130
  Transmission Date: 20150721
  Serious: No
  Sender: FDA-Public Use
  Company Number: US-ABBVIE-15P-163-1331824-00

PATIENT
  Sex: Male

DRUGS (7)
  1. PROVENGE [Suspect]
     Active Substance: SIPULEUCEL-T
     Indication: PROSTATE CANCER
     Dosage: SUSPENSION, SINGLE
     Route: 042
     Dates: start: 20140814, end: 20140814
  2. PROVENGE [Suspect]
     Active Substance: SIPULEUCEL-T
     Indication: PROSTATE CANCER METASTATIC
     Dosage: SUSPENSION,SINGLE
     Route: 042
     Dates: start: 20140905, end: 20140905
  3. LUPRON DEPOT [Suspect]
     Active Substance: LEUPROLIDE ACETATE
     Indication: PROSTATE CANCER
     Route: 065
     Dates: start: 20090815
  4. CASODEX [Suspect]
     Active Substance: BICALUTAMIDE
     Indication: PROSTATE CANCER
     Route: 065
     Dates: start: 20090815
  5. CASODEX [Suspect]
     Active Substance: BICALUTAMIDE
     Route: 065
  6. PROVENGE [Suspect]
     Active Substance: SIPULEUCEL-T
     Dosage: SINGLE
     Route: 042
     Dates: start: 20140918, end: 20140918
  7. CALCIUM VITAMIN D [Concomitant]
     Active Substance: CALCIUM\VITAMIN D
     Indication: PRODUCT USED FOR UNKNOWN INDICATION
     Route: 065

REACTIONS (15)
  - Urine odour abnormal [Unknown]
  - Abdominal pain [Unknown]
  - Skin disorder [Unknown]
  - Dysuria [Unknown]
  - Urinary incontinence [Unknown]
  - Anxiety [Unknown]
  - Fatigue [Unknown]
  - Hot flush [Unknown]
  - Gynaecomastia [Unknown]
  - Ecchymosis [Unknown]
  - Clostridium difficile infection [Unknown]
  - Essential tremor [Unknown]
  - Decreased appetite [Unknown]
  - Constipation [Unknown]
  - Weight decreased [Unknown]

NARRATIVE: CASE EVENT DATE: 2014
